FAERS Safety Report 8250513-X (Version None)
Quarter: 2012Q2

REPORT INFORMATION
  Report Type: 
  Country: None (occurrence: None)
  Receive Date: 20120402
  Receipt Date: 20120402
  Transmission Date: 20120825
  Serious: Yes (Other)
  Sender: FDA-Public Use
  Company Number: None

PATIENT
  Age: 54 Year
  Sex: Male
  Weight: 97.522 kg

DRUGS (1)
  1. VIIBRYD [Suspect]
     Indication: ANXIETY
     Dosage: 40
     Route: 048
     Dates: start: 20110301, end: 20120401

REACTIONS (1)
  - PARAESTHESIA [None]
